FAERS Safety Report 17963994 (Version 2)
Quarter: 2020Q3

REPORT INFORMATION
  Report Type: Report from Study
  Country: JP (occurrence: JP)
  Receive Date: 20200630
  Receipt Date: 20200730
  Transmission Date: 20201103
  Serious: Yes (Other)
  Sender: FDA-Public Use
  Company Number: JP-JNJFOC-20180843968

PATIENT
  Age: 25 Year
  Sex: Female
  Weight: 45.8 kg

DRUGS (29)
  1. SIMPONI [Suspect]
     Active Substance: GOLIMUMAB
     Route: 058
     Dates: start: 20180915, end: 20180915
  2. PAREPLUS [Concomitant]
     Active Substance: AMINO ACIDS\DEXTROSE\ELECTROLYTES NOS\VITAMINS
     Indication: COLITIS ULCERATIVE
     Route: 041
     Dates: start: 20180501, end: 20180501
  3. PAREPLUS [Concomitant]
     Active Substance: AMINO ACIDS\DEXTROSE\ELECTROLYTES NOS\VITAMINS
     Route: 041
     Dates: start: 20180612, end: 20180612
  4. FERROMIA [Concomitant]
     Active Substance: SODIUM FERROUS CITRATE
     Indication: ANAEMIA
     Route: 048
  5. FESIN                              /00023550/ [Concomitant]
     Active Substance: IRON SUCROSE
     Indication: ANAEMIA
     Route: 041
  6. SIMPONI [Suspect]
     Active Substance: GOLIMUMAB
     Route: 058
     Dates: start: 20180815, end: 20180815
  7. SIMPONI [Suspect]
     Active Substance: GOLIMUMAB
     Route: 058
     Dates: start: 20200110, end: 20200110
  8. PAREPLUS [Concomitant]
     Active Substance: AMINO ACIDS\DEXTROSE\ELECTROLYTES NOS\VITAMINS
     Route: 041
     Dates: start: 20180616, end: 20180616
  9. PAREPLUS [Concomitant]
     Active Substance: AMINO ACIDS\DEXTROSE\ELECTROLYTES NOS\VITAMINS
     Route: 041
     Dates: start: 20180623, end: 20180623
  10. SIMPONI [Suspect]
     Active Substance: GOLIMUMAB
     Route: 058
     Dates: start: 20180515, end: 20180515
  11. SIMPONI [Suspect]
     Active Substance: GOLIMUMAB
     Route: 058
     Dates: start: 20180714, end: 20180714
  12. SIMPONI [Suspect]
     Active Substance: GOLIMUMAB
     Route: 058
     Dates: start: 20191227, end: 20191227
  13. MIYARISAN BM [Concomitant]
     Active Substance: CLOSTRIDIUM BUTYRICUM SPORES STRAIN M-55
     Indication: COLITIS ULCERATIVE
     Route: 048
  14. LIALDA [Concomitant]
     Active Substance: MESALAMINE
     Indication: COLITIS ULCERATIVE
     Route: 048
     Dates: start: 20180323
  15. PAREPLUS [Concomitant]
     Active Substance: AMINO ACIDS\DEXTROSE\ELECTROLYTES NOS\VITAMINS
     Route: 041
     Dates: start: 20180522, end: 20180522
  16. PAREPLUS [Concomitant]
     Active Substance: AMINO ACIDS\DEXTROSE\ELECTROLYTES NOS\VITAMINS
     Route: 041
     Dates: start: 20180526, end: 20180526
  17. PAREPLUS [Concomitant]
     Active Substance: AMINO ACIDS\DEXTROSE\ELECTROLYTES NOS\VITAMINS
     Route: 041
     Dates: start: 20180707, end: 20180707
  18. AZANIN [Suspect]
     Active Substance: AZATHIOPRINE
     Indication: COLITIS ULCERATIVE
     Route: 048
     Dates: end: 20180706
  19. PAREPLUS [Concomitant]
     Active Substance: AMINO ACIDS\DEXTROSE\ELECTROLYTES NOS\VITAMINS
     Route: 041
     Dates: start: 20180714, end: 20180714
  20. SIMPONI [Suspect]
     Active Substance: GOLIMUMAB
     Route: 058
     Dates: start: 20181013, end: 20181013
  21. AZANIN [Suspect]
     Active Substance: AZATHIOPRINE
     Route: 048
     Dates: start: 20180803
  22. MUCODYNE [Concomitant]
     Active Substance: CARBOCYSTEINE
     Indication: NASOPHARYNGITIS
     Route: 048
  23. SIMPONI [Suspect]
     Active Substance: GOLIMUMAB
     Indication: COLITIS ULCERATIVE
     Route: 058
     Dates: start: 20180501, end: 20180501
  24. AZANIN [Suspect]
     Active Substance: AZATHIOPRINE
     Route: 048
     Dates: start: 20170707, end: 20180802
  25. BUDESONIDE. [Concomitant]
     Active Substance: BUDESONIDE
     Indication: COLITIS ULCERATIVE
     Dosage: MEDICINE FOR INSERT
     Route: 054
     Dates: start: 20180427, end: 20180619
  26. PAREPLUS [Concomitant]
     Active Substance: AMINO ACIDS\DEXTROSE\ELECTROLYTES NOS\VITAMINS
     Route: 041
     Dates: start: 20180619, end: 20180619
  27. SIMPONI [Suspect]
     Active Substance: GOLIMUMAB
     Route: 058
     Dates: start: 20180616, end: 20180616
  28. NIFLEC [Concomitant]
     Active Substance: POLYETHYLENE GLYCOLS\POTASSIUM CHLORIDE\SODIUM BICARBONATE\SODIUM CHLORIDE\SODIUM SULFATE ANHYDROUS
     Indication: ENDOSCOPY LARGE BOWEL
     Route: 048
  29. INCREMIN                           /00023544/ [Concomitant]
     Active Substance: FERRIC PYROPHOSPHATE
     Indication: ANAEMIA
     Route: 048

REACTIONS (3)
  - Anaemia [Recovered/Resolved]
  - Nasopharyngitis [Recovered/Resolved]
  - Hypoalbuminaemia [Recovered/Resolved]

NARRATIVE: CASE EVENT DATE: 20180522
